FAERS Safety Report 8177647-2 (Version None)
Quarter: 2012Q1

REPORT INFORMATION
  Report Type: 
  Country: None (occurrence: None)
  Receive Date: 20120301
  Receipt Date: 20120223
  Transmission Date: 20120608
  Serious: Yes (Death, Other)
  Sender: FDA-Public Use
  Company Number: PHHY2011JP82611

PATIENT
  Sex: Male
  Weight: 73 kg

DRUGS (9)
  1. PREDNISOLONE [Suspect]
     Indication: NEPHROTIC SYNDROME
     Dosage: 40 MG, UNK
     Route: 048
     Dates: start: 20110116, end: 20110216
  2. SOLU-MEDROL [Suspect]
     Indication: NEPHROTIC SYNDROME
     Dosage: 500 MG, UNK
     Route: 042
     Dates: start: 20110218, end: 20110220
  3. NEORAL [Suspect]
     Indication: HENOCH-SCHONLEIN PURPURA NEPHRITIS
     Dosage: 100 MG, UNK
     Route: 048
     Dates: start: 20110116, end: 20110127
  4. PREDNISOLONE SODIUM SUCCINATE INJ [Suspect]
     Indication: NEPHROTIC SYNDROME
     Dosage: 40 MG, UNK
     Route: 042
     Dates: start: 20110217, end: 20110217
  5. GANCICLOVIR [Concomitant]
  6. LANSOPRAZOLE [Concomitant]
     Indication: PROPHYLAXIS
     Dosage: 30 MG, UNK
     Route: 048
     Dates: start: 20010116, end: 20110216
  7. NEORAL [Suspect]
     Dosage: 150 MG, UNK
     Route: 048
     Dates: start: 20110128, end: 20110216
  8. PREDNISOLONE SODIUM SUCCINATE INJ [Suspect]
     Dosage: 40 MG, UNK
     Route: 042
     Dates: start: 20110221
  9. METHYLPREDNISOLONE [Concomitant]

REACTIONS (10)
  - NEPHROTIC SYNDROME [None]
  - SHOCK HAEMORRHAGIC [None]
  - BLOOD PRESSURE DECREASED [None]
  - CYTOMEGALOVIRUS ENTEROCOLITIS [None]
  - SMALL INTESTINAL HAEMORRHAGE [None]
  - ANURIA [None]
  - RENAL IMPAIRMENT [None]
  - RENAL FAILURE ACUTE [None]
  - MELAENA [None]
  - INTESTINAL ULCER [None]
